FAERS Safety Report 8313457-0 (Version None)
Quarter: 2012Q2

REPORT INFORMATION
  Report Type: 
  Country: None (occurrence: None)
  Receive Date: 20120426
  Receipt Date: 20120418
  Transmission Date: 20120825
  Serious: Yes (Other)
  Sender: FDA-Public Use
  Company Number: FR-PFIZER INC-2012095656

PATIENT
  Age: 67 Year
  Sex: Male

DRUGS (12)
  1. MOLSIDOMINE [Suspect]
     Dosage: 1 DF, 2X/DAY
     Route: 048
     Dates: start: 20120301
  2. IKOREL [Suspect]
     Indication: CONGESTIVE CARDIOMYOPATHY
     Dosage: 20 MG, 2X/DAY
     Route: 048
     Dates: start: 20040101
  3. VALSARTAN [Suspect]
     Indication: HYPERTENSION
     Dosage: 80 MG, 1X/DAY
     Route: 048
     Dates: start: 20040101
  4. PREVISCAN [Suspect]
     Indication: ATRIAL FIBRILLATION
     Dosage: 20 MG, 1X/DAY
     Route: 048
     Dates: start: 20040101
  5. AMLODIPINE BESYLATE [Suspect]
     Indication: HYPERTENSION
     Dosage: 10 MG, 1X/DAY
     Route: 048
     Dates: start: 20040101
  6. BISOPROLOL FUMARATE [Suspect]
     Indication: CONGESTIVE CARDIOMYOPATHY
     Dosage: 2.5 MG, 1X/DAY
     Route: 048
     Dates: start: 20040101
  7. EZETIMIBE [Suspect]
     Indication: DYSLIPIDAEMIA
     Dosage: 10 MG, 1X/DAY
     Route: 048
     Dates: start: 20040101
  8. VASTAREL [Suspect]
     Indication: CONGESTIVE CARDIOMYOPATHY
     Dosage: 2 DF, 1X/DAY
     Dates: start: 20040101, end: 20120307
  9. MOLSIDOMINE [Suspect]
     Indication: CONGESTIVE CARDIOMYOPATHY
     Dosage: 1 DF, 3X/DAY
     Route: 048
     Dates: start: 20040101, end: 20120301
  10. ASPIRIN [Suspect]
     Indication: CONGESTIVE CARDIOMYOPATHY
     Dosage: 75 MG, 1X/DAY
     Route: 048
     Dates: start: 20040101, end: 20120307
  11. PANTOPRAZOLE SODIUM [Suspect]
     Dosage: 40 MG, 1X/DAY
     Route: 048
     Dates: start: 20040101, end: 20120307
  12. CRESTOR [Suspect]
     Indication: DYSLIPIDAEMIA
     Dosage: 5 MG, 1X/DAY
     Route: 048
     Dates: start: 20040101

REACTIONS (1)
  - HYPERHIDROSIS [None]
